FAERS Safety Report 5412484-0 (Version None)
Quarter: 2007Q3

REPORT INFORMATION
  Report Type: 
  Country: None (occurrence: None)
  Receive Date: 20070813
  Receipt Date: 20070807
  Transmission Date: 20080115
  Serious: Yes (Other)
  Sender: FDA-Public Use
  Company Number: US-BRACCO-BDI-009815

PATIENT
  Sex: Female

DRUGS (1)
  1. PROHANCE [Suspect]
     Route: 042
     Dates: start: 20070709, end: 20070709

REACTIONS (6)
  - ASTHENIA [None]
  - DIARRHOEA HAEMORRHAGIC [None]
  - HAEMATOCHEZIA [None]
  - HYPERHIDROSIS [None]
  - NAUSEA [None]
  - VISUAL ACUITY REDUCED TRANSIENTLY [None]
